FAERS Safety Report 16367290 (Version 1)
Quarter: 2019Q2

REPORT INFORMATION
  Report Type: Spontaneous
  Country: ES (occurrence: ES)
  Receive Date: 20190529
  Receipt Date: 20190529
  Transmission Date: 20190711
  Serious: Yes (Other)
  Sender: FDA-Public Use
  Company Number: ES-009507513-1905ESP009750

PATIENT
  Age: 61 Year
  Sex: Male
  Weight: 85 kg

DRUGS (4)
  1. SINEMET PLUS 25/100 MG COMPRIMIDOS [Suspect]
     Active Substance: CARBIDOPA\LEVODOPA
     Dosage: 4 DOSAGE FORM, QD
     Route: 048
     Dates: start: 2018, end: 201810
  2. ANAFRANIL [Interacting]
     Active Substance: CLOMIPRAMINE HYDROCHLORIDE
     Dosage: 4 DOSAGE FORM, QD
     Route: 048
     Dates: start: 2018, end: 201810
  3. XADAGO [Interacting]
     Active Substance: SAFINAMIDE MESYLATE
     Dosage: 100 MILLIGRAM, QD
     Route: 048
     Dates: start: 2018, end: 201810
  4. PLENUR [Interacting]
     Active Substance: LITHIUM CARBONATE
     Dosage: UNK
     Route: 048
     Dates: start: 2018, end: 201810

REACTIONS (4)
  - Aggression [Recovered/Resolved]
  - Hallucination [Recovered/Resolved]
  - Product prescribing error [Recovered/Resolved]
  - Tremor [Recovered/Resolved]

NARRATIVE: CASE EVENT DATE: 20181015
